FAERS Safety Report 9808834 (Version 1)
Quarter: 2014Q1

REPORT INFORMATION
  Report Type: Spontaneous
  Country: FR (occurrence: FR)
  Receive Date: 20140110
  Receipt Date: 20140110
  Transmission Date: 20141002
  Serious: Yes (Hospitalization, Other)
  Sender: FDA-Public Use
  Company Number: FR-PFIZER INC-2014003367

PATIENT
  Age: 85 Year
  Sex: Male

DRUGS (16)
  1. VANCOMYCIN [Suspect]
     Dosage: UNK
     Route: 065
     Dates: start: 201308, end: 20130831
  2. AMOXICILLIN TRIHYDRATE [Suspect]
     Indication: INFECTION
     Dosage: UNK
     Route: 065
     Dates: start: 201308, end: 20130831
  3. AMOXICILLIN TRIHYDRATE [Suspect]
     Dosage: UNK
     Dates: start: 20130925, end: 20131107
  4. ROCEPHINE [Suspect]
     Dosage: UNK
     Route: 065
     Dates: start: 201308
  5. CIFLOX [Suspect]
     Dosage: UNK
     Route: 042
     Dates: start: 20130826, end: 20131107
  6. RIFAMPICIN [Suspect]
     Dosage: UNK
     Route: 065
     Dates: start: 201308, end: 20130906
  7. TAVANIC [Suspect]
     Dosage: UNK
     Route: 065
     Dates: start: 201308, end: 20130831
  8. METFORMIN [Concomitant]
     Dosage: UNK
  9. DIAMICRON [Concomitant]
     Dosage: UNK
  10. PRAVASTATIN [Concomitant]
     Dosage: UNK
  11. IRBESARTAN [Concomitant]
     Dosage: UNK
  12. BISOPROLOL [Concomitant]
     Dosage: UNK
  13. PARIET [Concomitant]
     Dosage: UNK
  14. KARDEGIC [Concomitant]
     Dosage: UNK
  15. DAFALGAN [Concomitant]
     Dosage: UNK
  16. CORDARONE [Concomitant]
     Dosage: UNK
     Dates: end: 20131107

REACTIONS (5)
  - Renal failure acute [Unknown]
  - Acute respiratory distress syndrome [Unknown]
  - Altered state of consciousness [Unknown]
  - Gastrointestinal haemorrhage [Unknown]
  - Colitis [Unknown]
